FAERS Safety Report 19941296 (Version 3)
Quarter: 2022Q1

REPORT INFORMATION
  Report Type: Spontaneous
  Country: SE (occurrence: SE)
  Receive Date: 20211012
  Receipt Date: 20220315
  Transmission Date: 20220423
  Serious: Yes (Congenital Anomaly, Other)
  Sender: FDA-Public Use
  Company Number: SE-CIPLA LTD.-2021AU06772

PATIENT

DRUGS (2)
  1. LEVETIRACETAM [Suspect]
     Active Substance: LEVETIRACETAM
     Dosage: UNK
     Route: 064
  2. VALPROIC ACID [Suspect]
     Active Substance: VALPROIC ACID
     Dosage: UNK
     Route: 064

REACTIONS (2)
  - Renal fusion anomaly [Unknown]
  - Foetal exposure during pregnancy [Unknown]
